FAERS Safety Report 4624060-8 (Version None)
Quarter: 2005Q1

REPORT INFORMATION
  Report Type: 
  Country: None (occurrence: None)
  Receive Date: 20050329
  Receipt Date: 20050316
  Transmission Date: 20050727
  Serious: Yes (Other)
  Sender: FDA-Public Use
  Company Number: 2005006511

PATIENT
  Age: 80 Year
  Sex: Male

DRUGS (5)
  1. LOPID [Suspect]
     Indication: HYPERCHOLESTEROLAEMIA
     Dosage: ONE-HALF OF TABLET (600 MG, 1 IN 1 CYCLICAL), ORAL
     Route: 048
     Dates: end: 20041201
  2. HYZAAR [Suspect]
     Indication: HYPERTENSION
     Dosage: 100MG+25MG MILLGRAMS
  3. ISRADIPINE [Suspect]
     Indication: HYPERTENSION
     Dosage: (2.5 MG,), ORAL
     Route: 048
  4. TRIMETAZIDINE HYDROCHLORIDE (TRIMETAZIDINE HYDROCHLORIDE) [Concomitant]
  5. PLANT ALKALOIDS AND OTHER NATURAL PRODUCTS (PLANT ALKALOIDS AND OTHER [Concomitant]

REACTIONS (9)
  - ANAEMIA [None]
  - ANISOCHROMIA [None]
  - ANISOCYTOSIS [None]
  - DIZZINESS [None]
  - DUODENAL ULCER HAEMORRHAGE [None]
  - HYPOCHROMASIA [None]
  - MICROCYTOSIS [None]
  - OEDEMA PERIPHERAL [None]
  - PAIN [None]
